FAERS Safety Report 5258539-5 (Version None)
Quarter: 2007Q1

REPORT INFORMATION
  Report Type: 
  Country: None (occurrence: None)
  Receive Date: 20070308
  Receipt Date: 20070302
  Transmission Date: 20070707
  Serious: Yes (Other)
  Sender: FDA-Public Use
  Company Number: US-BRISTOL-MYERS SQUIBB COMPANY-13698691

PATIENT
  Age: 73 Year
  Sex: Female

DRUGS (5)
  1. CISPLATIN [Suspect]
     Indication: SQUAMOUS CELL CARCINOMA
  2. CYCLOPHOSPHAMIDE [Suspect]
     Indication: SQUAMOUS CELL CARCINOMA
  3. METHOTREXATE [Suspect]
     Indication: SQUAMOUS CELL CARCINOMA
  4. THIOGUANINE [Suspect]
     Indication: SQUAMOUS CELL CARCINOMA
  5. RADIATION THERAPY [Concomitant]
     Indication: SQUAMOUS CELL CARCINOMA

REACTIONS (1)
  - BLOOD CREATININE INCREASED [None]
